FAERS Safety Report 7618715-0 (Version None)
Quarter: 2011Q3

REPORT INFORMATION
  Report Type: 
  Country: None (occurrence: None)
  Receive Date: 20110718
  Receipt Date: 20110704
  Transmission Date: 20111222
  Serious: Yes (Hospitalization)
  Sender: FDA-Public Use
  Company Number: FR-GENENTECH-320573

PATIENT
  Sex: Male
  Weight: 117 kg

DRUGS (7)
  1. PLAVIX [Concomitant]
     Indication: PRODUCT USED FOR UNKNOWN INDICATION
  2. APROVEL [Concomitant]
     Indication: PRODUCT USED FOR UNKNOWN INDICATION
  3. EZETIMIBE [Concomitant]
     Indication: PRODUCT USED FOR UNKNOWN INDICATION
  4. RANIBIZUMAB [Suspect]
     Indication: MACULAR OEDEMA
     Dosage: 0.5 MG, UNKNOWN
     Route: 031
     Dates: start: 20110303
  5. PREVISCAN (FRANCE) [Concomitant]
     Indication: PRODUCT USED FOR UNKNOWN INDICATION
  6. LANTUS [Concomitant]
     Indication: DIABETES MELLITUS
  7. RAMIPRIL [Concomitant]
     Indication: PRODUCT USED FOR UNKNOWN INDICATION

REACTIONS (2)
  - ANGINA PECTORIS [None]
  - ACUTE CORONARY SYNDROME [None]
